FAERS Safety Report 5453954-9 (Version None)
Quarter: 2007Q3

REPORT INFORMATION
  Report Type: 
  Country: None (occurrence: None)
  Receive Date: 20070917
  Receipt Date: 20070228
  Transmission Date: 20080115
  Serious: Yes (Hospitalization, Other)
  Sender: FDA-Public Use
  Company Number: US-ASTRAZENECA-2006UW03004

PATIENT
  Age: 15345 Day
  Sex: Female
  Weight: 95 kg

DRUGS (6)
  1. SEROQUEL [Suspect]
     Indication: INSOMNIA
     Route: 048
     Dates: start: 20010312, end: 20050307
  2. SEROQUEL [Suspect]
     Indication: DELUSION
     Route: 048
     Dates: start: 20010312, end: 20050307
  3. SEROQUEL [Suspect]
     Indication: DEPRESSION
     Route: 048
     Dates: start: 20010312, end: 20050307
  4. HALDOL [Concomitant]
  5. RISPERDAL [Concomitant]
     Dates: start: 20020809, end: 20040917
  6. STELAZINE [Concomitant]
     Dates: start: 19990101

REACTIONS (3)
  - DIABETIC KETOACIDOSIS [None]
  - TYPE 2 DIABETES MELLITUS [None]
  - WEIGHT INCREASED [None]
